FAERS Safety Report 6508551-0 (Version None)
Quarter: 2009Q4

REPORT INFORMATION
  Report Type: 
  Country: None (occurrence: None)
  Receive Date: 20091221
  Receipt Date: 20081120
  Transmission Date: 20100525
  Serious: No
  Sender: FDA-Public Use
  Company Number: US-ASTRAZENECA-2008UW26090

PATIENT
  Age: 77 Year
  Sex: Male
  Weight: 90.7 kg

DRUGS (2)
  1. CRESTOR [Suspect]
     Dosage: UNKNOWN
     Route: 048
     Dates: start: 20080901
  2. BLOOD PRESSURE MEDICATIONS [Concomitant]
     Indication: BLOOD PRESSURE

REACTIONS (1)
  - INSOMNIA [None]
